FAERS Safety Report 7554810-2 (Version None)
Quarter: 2011Q2

REPORT INFORMATION
  Report Type: 
  Country: None (occurrence: None)
  Receive Date: 20110617
  Receipt Date: 20110613
  Transmission Date: 20111010
  Serious: Yes (Other)
  Sender: FDA-Public Use
  Company Number: US-PFIZER INC-2011130170

PATIENT
  Sex: Female

DRUGS (2)
  1. MEDROL [Suspect]
  2. GLEEVEC [Interacting]

REACTIONS (6)
  - DRUG INTERACTION [None]
  - AMNESIA [None]
  - DISORIENTATION [None]
  - DIARRHOEA [None]
  - VOMITING [None]
  - ABNORMAL BEHAVIOUR [None]
